FAERS Safety Report 5368239-9 (Version None)
Quarter: 2007Q2

REPORT INFORMATION
  Report Type: 
  Country: None (occurrence: None)
  Receive Date: 20070622
  Receipt Date: 20070622
  Transmission Date: 20071010
  Serious: Yes (Disabling, Other)
  Sender: FDA-Public Use
  Company Number: None

PATIENT
  Age: 43 Year
  Sex: Female
  Weight: 88.4514 kg

DRUGS (2)
  1. ZICAM NO-DRIP LIQUID NASAL GEL 0.50OZ/15ML [Suspect]
     Indication: NASAL CONGESTION
     Dosage: PUMP ONCE EACH NOSTRIL NASAL PASSAGE
     Route: 045
     Dates: start: 20070305
  2. ZICAM NO-DRIP LIQUID NASAL GEL 0.50OZ/15ML [Suspect]
     Indication: NASOPHARYNGITIS
     Dosage: PUMP ONCE EACH NOSTRIL NASAL PASSAGE
     Route: 045
     Dates: start: 20070305

REACTIONS (8)
  - AGEUSIA [None]
  - ANOSMIA [None]
  - CRANIAL NERVE INJURY [None]
  - EPISTAXIS [None]
  - NASAL DISCOMFORT [None]
  - NASAL MUCOSAL DISCOLOURATION [None]
  - NASAL MUCOSAL DISORDER [None]
  - OLFACTORY NERVE DISORDER [None]
